FAERS Safety Report 4798290-9 (Version None)
Quarter: 2005Q4

REPORT INFORMATION
  Report Type: 
  Country: None (occurrence: None)
  Receive Date: 20051006
  Receipt Date: 20051006
  Transmission Date: 20060501
  Serious: Yes (Life-Threatening, Hospitalization)
  Sender: FDA-Public Use
  Company Number: None

PATIENT

DRUGS (17)
  1. WARFARIN [Suspect]
     Indication: ANTICOAGULANT THERAPY
     Dosage: 5MG PO  QD
     Route: 048
  2. CYCLOSPORINE [Concomitant]
  3. TACROLIMUS [Concomitant]
  4. FUROSEMIDE [Concomitant]
  5. COLCHICINE [Concomitant]
  6. COMPAZINE [Concomitant]
  7. DANAZOLE [Concomitant]
  8. FLUTICONAZOLE [Concomitant]
  9. SULFAMETHOXAZOLE [Concomitant]
  10. INSULIN [Concomitant]
  11. IMMUNE GLOBULIN INTRAVENOUS (HUMAN) [Concomitant]
  12. AZATHIOPRINE [Concomitant]
  13. PREDNISONE [Concomitant]
  14. OMEPRAZOLE [Concomitant]
  15. MG OXIDE [Concomitant]
  16. ONDANSETRON [Concomitant]
  17. DIPHENOXYLATE HCL + ATROPINE SULFATE [Concomitant]

REACTIONS (4)
  - DEEP VEIN THROMBOSIS [None]
  - INTERNATIONAL NORMALISED RATIO DECREASED [None]
  - OEDEMA [None]
  - PULMONARY EMBOLISM [None]
